FAERS Safety Report 5113176-8 (Version None)
Quarter: 2006Q3

REPORT INFORMATION
  Report Type: 
  Country: None (occurrence: None)
  Receive Date: 20060731
  Receipt Date: 20060609
  Transmission Date: 20061208
  Serious: No
  Sender: FDA-Public Use
  Company Number: 2006PV015333

PATIENT
  Age: 36 Year
  Sex: Female
  Weight: 77.1115 kg

DRUGS (3)
  1. BYETTA [Suspect]
     Dosage: 10 MCG;BID;SC
     Route: 058
     Dates: start: 20060101
  2. GLUCOPHAGE [Concomitant]
  3. THYROID TAB [Concomitant]

REACTIONS (5)
  - DIARRHOEA [None]
  - INJECTION SITE INDURATION [None]
  - INJECTION SITE URTICARIA [None]
  - VOMITING [None]
  - WEIGHT DECREASED [None]
